FAERS Safety Report 25274545 (Version 1)
Quarter: 2025Q2

REPORT INFORMATION
  Report Type: Spontaneous
  Country: US (occurrence: US)
  Receive Date: 20250506
  Receipt Date: 20250506
  Transmission Date: 20250717
  Serious: No
  Sender: VERTEX
  Company Number: US-VERTEX PHARMACEUTICALS-2025-006119

PATIENT
  Sex: Male

DRUGS (4)
  1. JOURNAVX [Suspect]
     Active Substance: SUZETRIGINE
     Indication: Sacral pain
     Route: 048
  2. JOURNAVX [Suspect]
     Active Substance: SUZETRIGINE
     Route: 048
  3. OXYCODONE [Concomitant]
     Active Substance: OXYCODONE
     Dosage: 15 MG, QID
  4. TRAMADOL [Concomitant]
     Active Substance: TRAMADOL

REACTIONS (3)
  - Paraesthesia [Recovered/Resolved]
  - Nausea [Recovered/Resolved]
  - Off label use [Unknown]
